FAERS Safety Report 10549347 (Version 2)
Quarter: 2014Q4

REPORT INFORMATION
  Report Type: Spontaneous
  Country: PT (occurrence: PT)
  Receive Date: 20141028
  Receipt Date: 20141029
  Transmission Date: 20150529
  Serious: Yes (Death, Hospitalization)
  Sender: FDA-Public Use
  Company Number: PT-JNJFOC-20141016730

PATIENT
  Age: 48 Year
  Sex: Male

DRUGS (1)
  1. GOLIMUMAB [Suspect]
     Active Substance: GOLIMUMAB
     Indication: RHEUMATOID ARTHRITIS
     Dosage: RECEIVED 3 ADMINISTRATIONS
     Route: 058

REACTIONS (5)
  - Off label use [Unknown]
  - Decubitus ulcer [Unknown]
  - Demyelination [Not Recovered/Not Resolved]
  - Infection [Unknown]
  - Respiratory tract infection [Fatal]
